FAERS Safety Report 6268350-4 (Version None)
Quarter: 2009Q3

REPORT INFORMATION
  Report Type: 
  Country: None (occurrence: None)
  Receive Date: 20090715
  Receipt Date: 20090706
  Transmission Date: 20100115
  Serious: Yes (Other)
  Sender: FDA-Public Use
  Company Number: PHEH2004US01690

PATIENT
  Sex: Female

DRUGS (7)
  1. AREDIA [Suspect]
     Indication: METASTASES TO BONE
     Dosage: 90 MG,Q 4-6 WKS
     Dates: start: 19961004, end: 20040101
  2. PAMIDRONATE DISODIUM [Suspect]
     Dosage: UNK MG, Q 4 WKS
     Route: 042
     Dates: start: 20000101, end: 20040106
  3. ZOMETA [Suspect]
     Indication: BREAST CANCER
     Dosage: 4 MG, QMO
     Route: 042
     Dates: end: 20070801
  4. PROCRIT [Concomitant]
  5. OXYCONTIN [Concomitant]
  6. DECADRON [Concomitant]
     Dosage: 26MG TO 4MG/WITH CHEMO
     Dates: start: 20010220
  7. TAMOXIFEN CITRATE [Concomitant]

REACTIONS (23)
  - ARTHRALGIA [None]
  - BONE DISORDER [None]
  - BREAST CANCER METASTATIC [None]
  - DYSPHAGIA [None]
  - HEPATIC LESION [None]
  - JAW DISORDER [None]
  - JAW OPERATION [None]
  - MOUTH ULCERATION [None]
  - NEUROPATHY PERIPHERAL [None]
  - ORAL DISORDER [None]
  - ORAL PAIN [None]
  - OROPHARYNGEAL PAIN [None]
  - OSTEITIS [None]
  - OSTEONECROSIS [None]
  - OSTEOPOROSIS [None]
  - PAIN IN EXTREMITY [None]
  - PAIN IN JAW [None]
  - PALMAR-PLANTAR ERYTHRODYSAESTHESIA SYNDROME [None]
  - PARAESTHESIA [None]
  - SURGERY [None]
  - SWOLLEN TONGUE [None]
  - TOOTH EXTRACTION [None]
  - TUMOUR MARKER INCREASED [None]
